FAERS Safety Report 5089476-7 (Version None)
Quarter: 2006Q3

REPORT INFORMATION
  Report Type: 
  Country: None (occurrence: None)
  Receive Date: 20060822
  Receipt Date: 20060808
  Transmission Date: 20061208
  Serious: Yes (Hospitalization, Other)
  Sender: FDA-Public Use
  Company Number: PHBS2006SE08149

PATIENT
  Age: 83 Year
  Sex: Female

DRUGS (3)
  1. VISUDYNE [Suspect]
     Indication: RETINAL NEOVASCULARISATION
     Dates: start: 20060405, end: 20060405
  2. SALURES [Concomitant]
  3. ENALAPRIL [Concomitant]

REACTIONS (1)
  - TRANSIENT ISCHAEMIC ATTACK [None]
